FAERS Safety Report 7091756-0 (Version None)
Quarter: 2010Q4

REPORT INFORMATION
  Report Type: 
  Country: None (occurrence: None)
  Receive Date: 20101109
  Receipt Date: 20101101
  Transmission Date: 20110411
  Serious: Yes (Hospitalization, Disabling, Other)
  Sender: FDA-Public Use
  Company Number: GB-MERCK-1008GBR00111

PATIENT
  Age: 63 Year
  Sex: Female

DRUGS (3)
  1. VYTORIN [Suspect]
     Indication: HYPERLIPIDAEMIA
     Route: 048
     Dates: start: 20100813, end: 20100820
  2. LEVOTHYROXINE SODIUM [Concomitant]
     Route: 065
  3. OMEPRAZOLE [Concomitant]
     Indication: GASTRITIS
     Route: 065
     Dates: start: 20100721, end: 20100801

REACTIONS (4)
  - BLEPHARITIS [None]
  - EYE ABSCESS [None]
  - LENS DISLOCATION [None]
  - SKIN NODULE [None]
